FAERS Safety Report 18139100 (Version 2)
Quarter: 2020Q3

REPORT INFORMATION
  Report Type: Report from Study
  Country: BR (occurrence: BR)
  Receive Date: 20200812
  Receipt Date: 20200818
  Transmission Date: 20201103
  Serious: Yes (Other)
  Sender: FDA-Public Use
  Company Number: NVSC2020BR216738

PATIENT
  Age: 71 Year
  Sex: Female
  Weight: 83 kg

DRUGS (9)
  1. AAS [Concomitant]
     Active Substance: ASPIRIN
     Indication: BLOOD TEST
     Dosage: 100 MG, QD
     Route: 048
  2. XOLAIR [Suspect]
     Active Substance: OMALIZUMAB
     Indication: CHRONIC SPONTANEOUS URTICARIA
     Dosage: UNK UNK, QMO
     Route: 058
     Dates: start: 20200528
  3. ALPRAZOLAM. [Concomitant]
     Active Substance: ALPRAZOLAM
     Indication: SLEEP DISORDER
     Dosage: 1 MG, QD(1 TABLET)(3 YEARS AGO)
     Route: 048
  4. SELOZOK [Concomitant]
     Active Substance: METOPROLOL SUCCINATE
     Indication: VENOUS OCCLUSION
     Dosage: 25 MG, QD(1 TABLET OF 25MG)
     Route: 048
  5. VENALOT [Concomitant]
     Active Substance: COUMARIN\TROXERUTIN
     Indication: VARICOSE VEIN
     Dosage: 15 MG, QD
     Route: 048
  6. ATORVASTATIN [Suspect]
     Active Substance: ATORVASTATIN
     Indication: BLOOD CHOLESTEROL ABNORMAL
     Dosage: 1 DF, QD
     Route: 048
  7. ACETAMIDE [Concomitant]
     Active Substance: ACETAMIDE
     Indication: BLOOD TRIGLYCERIDES ABNORMAL
     Dosage: 10 MG, QD
     Route: 048
  8. PAROXETIN [Concomitant]
     Active Substance: PAROXETINE HYDROCHLORIDE
     Indication: DEPRESSION
     Dosage: 20 MG, QD
     Route: 048
  9. NAPRIX D [Concomitant]
     Indication: HYPERTENSION
     Dosage: UNK UNK, QD(I TABLET 5MG+25MG)
     Route: 048

REACTIONS (14)
  - Skin mass [Recovered/Resolved]
  - Swelling [Recovered/Resolved]
  - Haematoma [Unknown]
  - Dengue fever [Recovered/Resolved]
  - Pyrexia [Recovered/Resolved]
  - Skin mass [Not Recovered/Not Resolved]
  - Diabetes mellitus [Not Recovered/Not Resolved]
  - Swelling [Not Recovered/Not Resolved]
  - Blood cholesterol increased [Not Recovered/Not Resolved]
  - Oral allergy syndrome [Not Recovered/Not Resolved]
  - Pruritus [Not Recovered/Not Resolved]
  - Pruritus [Recovered/Resolved]
  - Drug ineffective [Unknown]
  - Mouth swelling [Recovered/Resolved]

NARRATIVE: CASE EVENT DATE: 20200709
